FAERS Safety Report 8608136 (Version 2)
Quarter: 2013Q1

REPORT INFORMATION
  Report Type: Report from Study
  Country: VE (occurrence: VE)
  Receive Date: 20120611
  Receipt Date: 20130118
  Transmission Date: 20140127
  Serious: Yes (Death, Other)
  Sender: FDA-Public Use
  Company Number: VE-ABBOTT-12P-178-0943920-00

PATIENT
  Sex: Male

DRUGS (1)
  1. HUMIRA 40 MG/ 0.8 ML PRE-FILLED SYRINGE [Suspect]
     Indication: RHEUMATOID ARTHRITIS
     Route: 058
     Dates: start: 20090108, end: 2011

REACTIONS (5)
  - Respiratory arrest [Fatal]
  - Lung disorder [Not Recovered/Not Resolved]
  - Liver disorder [Unknown]
  - Cough [Unknown]
  - Increased upper airway secretion [Unknown]
